FAERS Safety Report 5744861-2 (Version None)
Quarter: 2008Q2

REPORT INFORMATION
  Report Type: 
  Country: None (occurrence: None)
  Receive Date: 20080516
  Receipt Date: 20080505
  Transmission Date: 20081010
  Serious: No
  Sender: FDA-Public Use
  Company Number: 056-C5013-07010862

PATIENT
  Age: 65 Year
  Sex: Female
  Weight: 52 kg

DRUGS (10)
  1. CC-5013 (LENALIDOMIDE) (CAPSULES) [Suspect]
     Indication: MULTIPLE MYELOMA
     Dosage: 25 MG, DAILY, PER ORAL
     Route: 048
     Dates: start: 20060927, end: 20061218
  2. DEXAMETHASONE TAB [Suspect]
     Indication: MULTIPLE MYELOMA
     Dosage: DAILY, PER ORAL
     Route: 048
     Dates: start: 20060927, end: 20061218
  3. PREVISCAN (FLUINDIONE) [Concomitant]
  4. EPREX [Concomitant]
  5. LYTOS (CLODRONATE DISODIUM) [Concomitant]
  6. DIFFUS K (POTASSIUM CHLORIDE) [Concomitant]
  7. CELEBREX [Concomitant]
  8. PANTOPRAZOLE SODIUM [Concomitant]
  9. RIVOTRYL (CLONAZEPAM) [Concomitant]
  10. LEXOMIL (BROMAZEPAM) [Concomitant]

REACTIONS (10)
  - ASTHENIA [None]
  - CHEST PAIN [None]
  - DISEASE PROGRESSION [None]
  - DRUG INEFFECTIVE [None]
  - HYPOREFLEXIA [None]
  - INSOMNIA [None]
  - LUNG DISORDER [None]
  - NEUROPATHY PERIPHERAL [None]
  - NEUROTOXICITY [None]
  - PHLEBITIS [None]
